FAERS Safety Report 13387217 (Version 1)
Quarter: 2017Q1

REPORT INFORMATION
  Report Type: Spontaneous
  Country: US (occurrence: US)
  Receive Date: 20170330
  Receipt Date: 20170330
  Transmission Date: 20170429
  Serious: Yes (Other)
  Sender: FDA-Public Use
  Company Number: US-NOVOPROD-537574

PATIENT
  Age: 61 Year
  Sex: Female
  Weight: 76 kg

DRUGS (2)
  1. VICTOZA [Suspect]
     Active Substance: LIRAGLUTIDE
     Dosage: 1.8 MG, QD (PT DID TITRATE THE MEDICATION)
     Route: 058
  2. VICTOZA [Suspect]
     Active Substance: LIRAGLUTIDE
     Indication: TYPE 2 DIABETES MELLITUS
     Dosage: UNK (PT DID TITRATE THE MEDICATION)
     Route: 058
     Dates: start: 2012

REACTIONS (6)
  - Device malfunction [Unknown]
  - Coronary artery disease [Recovered/Resolved]
  - Incorrect dose administered by device [Unknown]
  - Retinopathy [Not Recovered/Not Resolved]
  - Cataract [Recovered/Resolved]
  - Retinal haemorrhage [Recovered/Resolved]

NARRATIVE: CASE EVENT DATE: 2012
